FAERS Safety Report 5206765-3 (Version None)
Quarter: 2007Q1

REPORT INFORMATION
  Report Type: 
  Country: None (occurrence: None)
  Receive Date: 20070109
  Receipt Date: 20061228
  Transmission Date: 20070707
  Serious: Yes (Hospitalization)
  Sender: FDA-Public Use
  Company Number: 2006-152374-NL

PATIENT
  Age: 37 Year
  Sex: Female

DRUGS (5)
  1. MIRTAZAPINE [Suspect]
  2. AMANTADINE HCL [Suspect]
  3. PRAMIPEXOLE DIHYDROCHLORIDE [Suspect]
     Indication: TREMOR
     Dosage: 2.1 MG/2.8 MG
  4. FRUSEMIDE [Concomitant]
  5. TIZANIDINE HCL [Concomitant]

REACTIONS (5)
  - AGGRESSION [None]
  - HALLUCINATION, AUDITORY [None]
  - HALLUCINATION, VISUAL [None]
  - JEALOUS DELUSION [None]
  - PSYCHOTIC DISORDER [None]
